FAERS Safety Report 20811543 (Version 2)
Quarter: 2022Q2

REPORT INFORMATION
  Report Type: Report from Study
  Country: US (occurrence: US)
  Receive Date: 20220510
  Receipt Date: 20220512
  Transmission Date: 20220721
  Serious: Yes (Death, Hospitalization)
  Sender: FDA-Public Use
  Company Number: US-ABBVIE-22K-163-4388736-00

PATIENT
  Age: 94 Year
  Sex: Female
  Weight: 62.652 kg

DRUGS (8)
  1. HUMIRA [Suspect]
     Active Substance: ADALIMUMAB
     Indication: Crohn^s disease
     Dosage: CITRATE FREE
     Route: 058
     Dates: start: 20220105
  2. ELIQUIS [Concomitant]
     Active Substance: APIXABAN
     Indication: Anticoagulant therapy
     Route: 065
  3. METOPROLOL [Concomitant]
     Active Substance: METOPROLOL
     Indication: Blood pressure measurement
     Route: 065
  4. OMEPRAZOLE [Concomitant]
     Active Substance: OMEPRAZOLE
     Indication: Gastrooesophageal reflux disease
     Route: 065
  5. QUINAPRIL [Concomitant]
     Active Substance: QUINAPRIL
     Indication: Blood pressure measurement
     Route: 065
  6. DIPHENOXYLATE [Concomitant]
     Active Substance: DIPHENOXYLATE
     Indication: Diarrhoea
     Route: 065
  7. COVID-19 VACCINE [Concomitant]
     Indication: COVID-19 immunisation
     Dosage: 1ST DOSE, UNKNOWN MANUFACTURER
     Route: 030
  8. COVID-19 VACCINE [Concomitant]
     Dosage: 2ND DOSE, UNKNOWN MANUFACTURER
     Route: 030
     Dates: start: 20220101, end: 20220101

REACTIONS (10)
  - Ovarian cancer metastatic [Fatal]
  - Decreased appetite [Unknown]
  - Dizziness [Unknown]
  - Abnormal faeces [Unknown]
  - Gastrointestinal motility disorder [Unknown]
  - Abdominal distension [Unknown]
  - Blood creatinine increased [Unknown]
  - Abdominal rigidity [Unknown]
  - Blood urea increased [Unknown]
  - Blood bilirubin increased [Unknown]

NARRATIVE: CASE EVENT DATE: 20220321
